FAERS Safety Report 10333615 (Version 1)
Quarter: 2014Q3

REPORT INFORMATION
  Report Type: Spontaneous
  Country: US (occurrence: US)
  Receive Date: 20140723
  Receipt Date: 20140723
  Transmission Date: 20150326
  Serious: Yes (Hospitalization, Other)
  Sender: FDA-Public Use
  Company Number: US-ROCHE-1437567

PATIENT
  Sex: Male

DRUGS (1)
  1. GAZYVA [Suspect]
     Active Substance: OBINUTUZUMAB
     Indication: CHRONIC LYMPHOCYTIC LEUKAEMIA
     Dosage: 2 INFUSTIONS DAY 1, 8 IN AN IN PATIENT SETTING
     Route: 042

REACTIONS (3)
  - Febrile neutropenia [Unknown]
  - Salmonella sepsis [Unknown]
  - Pancytopenia [Unknown]
